FAERS Safety Report 6930800-5 (Version None)
Quarter: 2010Q3

REPORT INFORMATION
  Report Type: 
  Country: None (occurrence: None)
  Receive Date: 20100817
  Receipt Date: 20100817
  Transmission Date: 20110219
  Serious: Yes (Death)
  Sender: FDA-Public Use
  Company Number: None

PATIENT
  Age: 16 Year
  Sex: Female
  Weight: 90.7194 kg

DRUGS (1)
  1. YASMIN [Suspect]
     Indication: MENSTRUATION IRREGULAR
     Dosage: 1 TAB EVERYDAY PO
     Route: 048
     Dates: start: 20030811, end: 20031030

REACTIONS (6)
  - BRAIN DEATH [None]
  - CEREBRAL HAEMORRHAGE [None]
  - CEREBROVASCULAR ACCIDENT [None]
  - GENERAL PHYSICAL HEALTH DETERIORATION [None]
  - SUPERIOR SAGITTAL SINUS THROMBOSIS [None]
  - SURGICAL FAILURE [None]
